FAERS Safety Report 19425153 (Version 4)
Quarter: 2022Q1

REPORT INFORMATION
  Report Type: Spontaneous
  Country: US (occurrence: US)
  Receive Date: 20210617
  Receipt Date: 20220205
  Transmission Date: 20220423
  Serious: Yes (Hospitalization)
  Sender: FDA-Public Use
  Company Number: US-SA-SAC20210615000375

PATIENT
  Age: 16 Year
  Sex: Male

DRUGS (6)
  1. ALPROLIX [Suspect]
     Active Substance: EFTRENONACOG ALFA
     Indication: Factor IX deficiency
     Dosage: 4316 IU, Q10D
     Route: 042
     Dates: start: 201910
  2. ALPROLIX [Suspect]
     Active Substance: EFTRENONACOG ALFA
     Indication: Factor IX deficiency
     Dosage: 4316 IU, Q10D
     Route: 042
     Dates: start: 201910
  3. ALPROLIX [Suspect]
     Active Substance: EFTRENONACOG ALFA
     Dosage: 6100 IU, Q10D
     Route: 042
     Dates: start: 20191101
  4. ALPROLIX [Suspect]
     Active Substance: EFTRENONACOG ALFA
     Dosage: 6100 IU, Q10D
     Route: 042
     Dates: start: 20191101
  5. ALPROLIX [Suspect]
     Active Substance: EFTRENONACOG ALFA
     Dosage: 6100 IU, 1X
     Route: 042
     Dates: start: 20210926, end: 20210926
  6. ALPROLIX [Suspect]
     Active Substance: EFTRENONACOG ALFA
     Dosage: 6100 IU, 1X
     Route: 042
     Dates: start: 20210926, end: 20210926

REACTIONS (4)
  - Epistaxis [Unknown]
  - Contusion [Unknown]
  - Accident at home [Unknown]
  - Product dose omission issue [Unknown]

NARRATIVE: CASE EVENT DATE: 20210926
